FAERS Safety Report 20363019 (Version 5)
Quarter: 2024Q1

REPORT INFORMATION
  Report Type: Report from Study
  Country: CA (occurrence: CA)
  Receive Date: 20220121
  Receipt Date: 20240123
  Transmission Date: 20240410
  Serious: Yes (Other)
  Sender: FDA-Public Use
  Company Number: CA-BAUSCH-BL-2021-023980

PATIENT
  Age: 57 Year
  Sex: Female
  Weight: 75 kg

DRUGS (11)
  1. SILIQ [Suspect]
     Active Substance: BRODALUMAB
     Indication: Psoriasis
     Dosage: 210MG/ 1.5 ML (WEEK 0,1,2)
     Route: 058
     Dates: start: 20210630, end: 202107
  2. SILIQ [Suspect]
     Active Substance: BRODALUMAB
     Dosage: 210MG/ 1.5 ML
     Route: 058
     Dates: start: 202109, end: 202109
  3. SILIQ [Suspect]
     Active Substance: BRODALUMAB
     Dosage: 210MG/ 1.5 ML
     Route: 058
     Dates: start: 202109
  4. SILIQ [Suspect]
     Active Substance: BRODALUMAB
     Dosage: 210MG/ 1.5 ML, Q 2 WEEKS
     Route: 058
  5. SILIQ [Suspect]
     Active Substance: BRODALUMAB
     Dosage: 210MG/ 1.5 ML, Q 2 WEEKS
     Route: 058
     Dates: start: 2023
  6. COVID-19 VACCINE NOS [Suspect]
     Active Substance: COVID-19 VACCINE NOS
     Indication: COVID-19 immunisation
     Dosage: TOTAL
     Route: 065
  7. AMLODIPINE [Concomitant]
     Active Substance: AMLODIPINE BESYLATE
     Indication: Product used for unknown indication
     Dosage: DAILY
     Route: 065
  8. CLONIDINE HYDROCHLORIDE [Concomitant]
     Active Substance: CLONIDINE HYDROCHLORIDE
     Indication: Product used for unknown indication
  9. HYDROCHLOROTHIAZIDE [Concomitant]
     Active Substance: HYDROCHLOROTHIAZIDE
     Indication: Product used for unknown indication
     Dosage: DAILY
     Route: 065
  10. LANSOPRAZOLE [Concomitant]
     Active Substance: LANSOPRAZOLE
     Indication: Product used for unknown indication
     Dosage: CAPSULE, DELAYED RELEASE
     Route: 065
  11. ESCITALOPRAM [Concomitant]
     Active Substance: ESCITALOPRAM OXALATE
     Indication: Product used for unknown indication
     Route: 065

REACTIONS (8)
  - Pericarditis [Not Recovered/Not Resolved]
  - Lacrimation increased [Not Recovered/Not Resolved]
  - Throat irritation [Not Recovered/Not Resolved]
  - Hypersomnia [Not Recovered/Not Resolved]
  - Psoriasis [Not Recovered/Not Resolved]
  - Myalgia [Not Recovered/Not Resolved]
  - Arthralgia [Not Recovered/Not Resolved]
  - Off label use [Unknown]

NARRATIVE: CASE EVENT DATE: 20210101
